FAERS Safety Report 17604322 (Version 1)
Quarter: 2020Q1

REPORT INFORMATION
  Report Type: Report from Study
  Country: TR (occurrence: TR)
  Receive Date: 20200331
  Receipt Date: 20200331
  Transmission Date: 20200409
  Serious: Yes (Other)
  Sender: FDA-Public Use
  Company Number: TR-PBT-000035

PATIENT
  Age: 25 Year

DRUGS (3)
  1. MYCOPHENOLATE MOFETIL. [Suspect]
     Active Substance: MYCOPHENOLATE MOFETIL
     Indication: C3 GLOMERULOPATHY
     Route: 065
  2. PREDNISOLONE. [Suspect]
     Active Substance: PREDNISOLONE
     Indication: C3 GLOMERULOPATHY
     Dosage: DAILY PREDNISOLONE (1 MG/KG/D)
     Route: 048
  3. TACROLIMUS. [Suspect]
     Active Substance: TACROLIMUS
     Indication: C3 GLOMERULOPATHY
     Route: 065

REACTIONS (3)
  - Glomerulosclerosis [Unknown]
  - Product use in unapproved indication [Unknown]
  - Renal tubular atrophy [Unknown]
